FAERS Safety Report 20687358 (Version 2)
Quarter: 2023Q1

REPORT INFORMATION
  Report Type: Spontaneous
  Country: FR (occurrence: FR)
  Receive Date: 20220408
  Receipt Date: 20230314
  Transmission Date: 20230417
  Serious: Yes (Hospitalization, Other)
  Sender: FDA-Public Use
  Company Number: None

PATIENT
  Age: 5 Year
  Sex: Male
  Weight: 22 kg

DRUGS (5)
  1. KINERET [Suspect]
     Active Substance: ANAKINRA
     Indication: COVID-19
     Dosage: 50MG (4MG/KG/J)
     Route: 058
     Dates: start: 20220123, end: 20220216
  2. KINERET [Suspect]
     Active Substance: ANAKINRA
     Indication: Multisystem inflammatory syndrome in children
  3. KINERET [Suspect]
     Active Substance: ANAKINRA
     Indication: Haemophagocytic lymphohistiocytosis
  4. SOLU-MEDROL [Suspect]
     Active Substance: METHYLPREDNISOLONE SODIUM SUCCINATE
     Indication: Multisystem inflammatory syndrome in children
     Dosage: 2MG/KG/J PUIS 4MG/KG/J, DOSE REDUCED
     Route: 042
     Dates: start: 20220121, end: 20220126
  5. METHYLPREDNISOLONE [Suspect]
     Active Substance: METHYLPREDNISOLONE
     Indication: Product used for unknown indication

REACTIONS (2)
  - Pancreatitis [Recovered/Resolved]
  - Off label use [Unknown]

NARRATIVE: CASE EVENT DATE: 20220126
